FAERS Safety Report 7549599-7 (Version None)
Quarter: 2011Q2

REPORT INFORMATION
  Report Type: 
  Country: None (occurrence: None)
  Receive Date: 20110615
  Receipt Date: 20110609
  Transmission Date: 20111010
  Serious: Yes (Death)
  Sender: FDA-Public Use
  Company Number: B0700821A

PATIENT
  Sex: Male
  Weight: 92 kg

DRUGS (13)
  1. CEPHARANTHINE [Concomitant]
     Indication: IDIOPATHIC THROMBOCYTOPENIC PURPURA
     Dosage: 6MG PER DAY
     Route: 048
     Dates: end: 20110124
  2. PREDNISOLONE [Concomitant]
     Indication: IDIOPATHIC THROMBOCYTOPENIC PURPURA
     Dosage: 30MG PER DAY
     Route: 048
     Dates: end: 20110103
  3. PROMACTA [Suspect]
     Indication: IDIOPATHIC THROMBOCYTOPENIC PURPURA
     Dosage: 12.5MG PER DAY
     Route: 048
     Dates: start: 20101210, end: 20101223
  4. WARFARIN SODIUM [Concomitant]
     Route: 048
  5. PREDNISOLONE [Concomitant]
     Dosage: 20MG PER DAY
     Route: 048
     Dates: start: 20110104, end: 20110113
  6. PREDNISOLONE [Concomitant]
     Dosage: 15MG PER DAY
     Route: 048
     Dates: start: 20110114, end: 20110117
  7. FUROSEMIDE [Concomitant]
  8. ALDACTONE [Concomitant]
     Route: 048
  9. PREDNISOLONE [Concomitant]
     Dosage: 10MG PER DAY
     Route: 048
     Dates: start: 20110118, end: 20110124
  10. PREDNISOLONE [Concomitant]
     Dosage: 5MG PER DAY
     Route: 048
     Dates: start: 20110125
  11. PROMACTA [Suspect]
     Dosage: 25MG PER DAY
     Route: 048
     Dates: start: 20101224
  12. IMURAN [Concomitant]
     Indication: IDIOPATHIC THROMBOCYTOPENIC PURPURA
     Dosage: 50MG PER DAY
     Route: 048
     Dates: end: 20110121
  13. CYCLOPHOSPHAMIDE [Concomitant]
     Indication: IDIOPATHIC THROMBOCYTOPENIC PURPURA
     Dosage: 50MG PER DAY
     Route: 048
     Dates: end: 20101216

REACTIONS (1)
  - PULMONARY EMBOLISM [None]
